APPROVED DRUG PRODUCT: THIORIDAZINE HYDROCHLORIDE
Active Ingredient: THIORIDAZINE HYDROCHLORIDE
Strength: 100MG/ML
Dosage Form/Route: CONCENTRATE;ORAL
Application: A089603 | Product #001
Applicant: ANI PHARMACEUTICALS INC
Approved: Nov 9, 1987 | RLD: No | RS: No | Type: DISCN